FAERS Safety Report 10444674 (Version 3)
Quarter: 2014Q4

REPORT INFORMATION
  Report Type: Spontaneous
  Country: AU (occurrence: AU)
  Receive Date: 20140910
  Receipt Date: 20141215
  Transmission Date: 20150528
  Serious: Yes (Life-Threatening, Hospitalization, Disabling)
  Sender: FDA-Public Use
  Company Number: AU-SA-2014SA121199

PATIENT
  Age: 45 Year
  Sex: Female
  Weight: 54 kg

DRUGS (1)
  1. TAXOTERE [Suspect]
     Active Substance: DOCETAXEL
     Indication: BREAST CANCER
     Route: 042
     Dates: start: 20140409, end: 20140409

REACTIONS (7)
  - Neutropenia [Not Recovered/Not Resolved]
  - Encephalitis [Not Recovered/Not Resolved]
  - Abdominal pain [Recovered/Resolved with Sequelae]
  - Neutrophil count decreased [Not Recovered/Not Resolved]
  - Large intestine perforation [Recovered/Resolved with Sequelae]
  - Enterocolitis [Not Recovered/Not Resolved]
  - Pyrexia [Not Recovered/Not Resolved]
